FAERS Safety Report 21904186 (Version 1)
Quarter: 2023Q1

REPORT INFORMATION
  Report Type: Spontaneous
  Country: US (occurrence: None)
  Receive Date: 20230123
  Receipt Date: 20230123
  Transmission Date: 20230417
  Serious: No
  Sender: FDA-Public Use
  Company Number: None

PATIENT
  Age: 17 Year
  Sex: Female
  Weight: 61.69 kg

DRUGS (2)
  1. ZIEXTENZO [Suspect]
     Active Substance: PEGFILGRASTIM-BMEZ
     Indication: Malignant connective tissue neoplasm
     Dosage: INJECT 6MG )0.6ML) SUABCUTANEOULSY ONCE 24 HOURS AFTER EACH 14 DAY           CHEMOTHERAPY CYCLE AS
     Route: 058
     Dates: start: 202210
  2. ZIEXTENZO [Suspect]
     Active Substance: PEGFILGRASTIM-BMEZ
     Indication: Soft tissue sarcoma

REACTIONS (1)
  - Chemotherapy [None]
